FAERS Safety Report 9741160 (Version 2)
Quarter: 2014Q1

REPORT INFORMATION
  Report Type: Spontaneous
  Country: US (occurrence: US)
  Receive Date: 20131209
  Receipt Date: 20140114
  Transmission Date: 20141002
  Serious: Yes (Other)
  Sender: FDA-Public Use
  Company Number: US-TEVA-449558USA

PATIENT
  Age: 23 Year
  Sex: Female
  Weight: 81.72 kg

DRUGS (1)
  1. PLAN B ONE-STEP [Suspect]
     Indication: POST COITAL CONTRACEPTION
     Dosage: 1.5 MILLIGRAM DAILY;
     Route: 048
     Dates: start: 20131027, end: 20131027

REACTIONS (5)
  - Pregnancy after post coital contraception [Unknown]
  - Mood swings [Unknown]
  - Menstruation delayed [Unknown]
  - Pelvic pain [Unknown]
  - Drug ineffective [Unknown]
